FAERS Safety Report 5643778-1 (Version None)
Quarter: 2008Q1

REPORT INFORMATION
  Report Type: 
  Country: None (occurrence: None)
  Receive Date: 20080226
  Receipt Date: 20080219
  Transmission Date: 20080703
  Serious: Yes (Other)
  Sender: FDA-Public Use
  Company Number: 070148

PATIENT
  Age: 53 Year
  Sex: Female
  Weight: 62.5964 kg

DRUGS (2)
  1. HALFLYTELY [Suspect]
     Indication: COLONOSCOPY
     Dosage: 20 MG/2 L, 1X, PO
     Route: 048
     Dates: start: 20071108
  2. METHADONE HCL [Concomitant]

REACTIONS (2)
  - COLITIS ISCHAEMIC [None]
  - COLONIC POLYP [None]
